FAERS Safety Report 15557407 (Version 3)
Quarter: 2018Q4

REPORT INFORMATION
  Report Type: Report from Study
  Country: US (occurrence: US)
  Receive Date: 20181026
  Receipt Date: 20181123
  Transmission Date: 20190205
  Serious: No
  Sender: FDA-Public Use
  Company Number: PHEH2018US045651

PATIENT
  Sex: Female

DRUGS (1)
  1. GILENYA [Suspect]
     Active Substance: FINGOLIMOD HYDROCHLORIDE
     Indication: MULTIPLE SCLEROSIS
     Dosage: 0.5 MG, QD
     Route: 048
     Dates: start: 20181004

REACTIONS (6)
  - Gait disturbance [Unknown]
  - Depression [Unknown]
  - Muscle spasms [Unknown]
  - Pain in extremity [Unknown]
  - Sneezing [Unknown]
  - Sinus headache [Unknown]
